FAERS Safety Report 10125051 (Version 2)
Quarter: 2015Q1

REPORT INFORMATION
  Report Type: Other
  Country: US (occurrence: US)
  Receive Date: 20140427
  Receipt Date: 20150209
  Transmission Date: 20150720
  Serious: Yes (Other)
  Sender: FDA-Public Use
  Company Number: US-GSKPPD-2014GSK026285

PATIENT
  Age: 49 Year
  Sex: Female

DRUGS (8)
  1. AVANDIA [Suspect]
     Active Substance: ROSIGLITAZONE MALEATE
     Indication: DIABETES MELLITUS
     Dosage: DATES OF AVANDIA USE COULD NOT BE CONFIRMED IN RECORDS REVIEWED.
     Route: 048
  2. ATENOLOL. [Concomitant]
     Active Substance: ATENOLOL
  3. ZESTORETIC [Concomitant]
     Active Substance: HYDROCHLOROTHIAZIDE\LISINOPRIL
     Dosage: 10MG AND 6.25MG
  4. PLAVIX [Concomitant]
     Active Substance: CLOPIDOGREL BISULFATE
     Dosage: FOR TWO WEEKS
  5. ASPIRIN. [Concomitant]
     Active Substance: ASPIRIN
  6. NIFEDIPINE. [Concomitant]
     Active Substance: NIFEDIPINE
  7. CLONIDINE. [Concomitant]
     Active Substance: CLONIDINE
  8. NITROGLYCERIN. [Concomitant]
     Active Substance: NITROGLYCERIN
     Dosage: PRN
     Route: 060

REACTIONS (1)
  - Coronary arterial stent insertion [Recovered/Resolved]

NARRATIVE: CASE EVENT DATE: 20010816
